FAERS Safety Report 9512476 (Version 2)
Quarter: 2013Q3

REPORT INFORMATION
  Report Type: Spontaneous
  Country: ZA (occurrence: ZA)
  Receive Date: 20130910
  Receipt Date: 20130910
  Transmission Date: 20140515
  Serious: Yes (Death, Other)
  Sender: FDA-Public Use
  Company Number: ZA-009507513-1308ZAF015240

PATIENT
  Age: 87 Year
  Sex: Male

DRUGS (1)
  1. ESMERON [Suspect]
     Indication: HIP ARTHROPLASTY
     Dosage: UNK
     Dates: start: 2009, end: 2009

REACTIONS (6)
  - Death [Fatal]
  - Shock [Unknown]
  - Haemostasis [Unknown]
  - Gastric ulcer [Unknown]
  - Stress [Unknown]
  - Drug hypersensitivity [Unknown]
